FAERS Safety Report 18594922 (Version 2)
Quarter: 2020Q4

REPORT INFORMATION
  Report Type: Spontaneous
  Country: GB (occurrence: GB)
  Receive Date: 20201209
  Receipt Date: 20201231
  Transmission Date: 20210114
  Serious: Yes (Other)
  Sender: FDA-Public Use
  Company Number: GB-AMGEN-GBRSP2020195907

PATIENT
  Sex: Male

DRUGS (1)
  1. BLINCYTO [Suspect]
     Active Substance: BLINATUMOMAB
     Indication: ACUTE LYMPHOCYTIC LEUKAEMIA
     Dosage: 28 MILLIGRAM, QD ,3.5ML PER HOUR, 72 HOUR BAG
     Route: 065
     Dates: start: 20201130

REACTIONS (1)
  - Vascular device occlusion [Unknown]

NARRATIVE: CASE EVENT DATE: 2020
